FAERS Safety Report 5214546-X (Version None)
Quarter: 2007Q1

REPORT INFORMATION
  Report Type: 
  Country: None (occurrence: None)
  Receive Date: 20070119
  Receipt Date: 20070119
  Transmission Date: 20070707
  Serious: Yes (Hospitalization)
  Sender: FDA-Public Use
  Company Number: None

PATIENT
  Sex: Female
  Weight: 86 kg

DRUGS (3)
  1. CARBOPLATIN [Suspect]
     Dosage: 545 MG
     Dates: end: 20061221
  2. TAXOL [Suspect]
     Dosage: 333 MG
     Dates: end: 20061218
  3. COMPAZINE [Concomitant]

REACTIONS (5)
  - HEAD INJURY [None]
  - LOSS OF CONSCIOUSNESS [None]
  - ORAL INTAKE REDUCED [None]
  - SKIN LACERATION [None]
  - SYNCOPE [None]
